FAERS Safety Report 15524535 (Version 3)
Quarter: 2018Q4

REPORT INFORMATION
  Report Type: Spontaneous
  Country: US (occurrence: US)
  Receive Date: 20181018
  Receipt Date: 20181120
  Transmission Date: 20190205
  Serious: No
  Sender: FDA-Public Use
  Company Number: US-PFIZER INC-2018419418

PATIENT
  Age: 55 Year
  Sex: Male
  Weight: 87.75 kg

DRUGS (2)
  1. LATUDA [Concomitant]
     Active Substance: LURASIDONE HYDROCHLORIDE
     Dosage: 1 DF, UNK
  2. ZOLOFT [Suspect]
     Active Substance: SERTRALINE HYDROCHLORIDE
     Indication: ANXIETY
     Dosage: 1 DF, DAILY
     Dates: start: 20180921, end: 20181003

REACTIONS (3)
  - Drug ineffective [Recovered/Resolved]
  - Condition aggravated [Unknown]
  - Exostosis [Unknown]
